FAERS Safety Report 6015308-6 (Version None)
Quarter: 2008Q4

REPORT INFORMATION
  Report Type: 
  Country: None (occurrence: None)
  Receive Date: 20081218
  Receipt Date: 20081215
  Transmission Date: 20090506
  Serious: Yes (Other)
  Sender: FDA-Public Use
  Company Number: SP02135

PATIENT
  Age: 65 Year
  Sex: Female

DRUGS (2)
  1. OSMOPREPIL (1.5 GRAM, TABLETS) [Suspect]
     Indication: COLONOSCOPY
     Dosage: ORAL
     Route: 048
     Dates: start: 20080801, end: 20080801
  2. ACE INHIBITORS [Concomitant]

REACTIONS (2)
  - NEPHROPATHY [None]
  - TUBULOINTERSTITIAL NEPHRITIS [None]
